FAERS Safety Report 12329054 (Version 1)
Quarter: 2016Q2

REPORT INFORMATION
  Report Type: Spontaneous
  Country: US (occurrence: US)
  Receive Date: 20160503
  Receipt Date: 20160503
  Transmission Date: 20160815
  Serious: Yes (Death, Hospitalization, Other)
  Sender: FDA-Public Use
  Company Number: US-009507513-0605USA00847

PATIENT
  Sex: Female
  Weight: 72.58 kg

DRUGS (3)
  1. FOSAMAX [Suspect]
     Active Substance: ALENDRONATE SODIUM
     Indication: OSTEOPOROSIS
     Dosage: 10 MG, QD
     Route: 048
     Dates: start: 1998, end: 2000
  2. ZOMETA [Suspect]
     Active Substance: ZOLEDRONIC ACID
     Route: 041
     Dates: start: 200301, end: 2006
  3. AREDIA [Suspect]
     Active Substance: PAMIDRONATE DISODIUM
     Indication: BREAST CANCER METASTATIC
     Dosage: UNK UNK, QM
     Route: 041
     Dates: start: 200003, end: 200301

REACTIONS (59)
  - Metastases to bone [Unknown]
  - Acute sinusitis [Recovering/Resolving]
  - Influenza like illness [Unknown]
  - Breast cancer metastatic [Not Recovered/Not Resolved]
  - Acute myocardial infarction [Unknown]
  - Sinusitis [Unknown]
  - Lymphadenopathy [Unknown]
  - Vein disorder [Unknown]
  - Lymphadenopathy [Unknown]
  - Lymphoedema [Unknown]
  - Cataract [Recovering/Resolving]
  - Back pain [Not Recovered/Not Resolved]
  - Urinary incontinence [Unknown]
  - Hydronephrosis [Not Recovered/Not Resolved]
  - Renal atrophy [Not Recovered/Not Resolved]
  - Osteonecrosis of jaw [Not Recovered/Not Resolved]
  - Nasal vestibulitis [Unknown]
  - Gingival bleeding [Unknown]
  - Rib fracture [Unknown]
  - Renal impairment [Not Recovered/Not Resolved]
  - Nausea [Recovering/Resolving]
  - Sinusitis [Recovering/Resolving]
  - Lung disorder [Unknown]
  - Epistaxis [Recovered/Resolved]
  - Eye disorder [Unknown]
  - Dyspnoea [Unknown]
  - Depression [Unknown]
  - Sinusitis [Not Recovered/Not Resolved]
  - Pubis fracture [Unknown]
  - Pain [Unknown]
  - Acute kidney injury [Unknown]
  - Cellulitis [Recovered/Resolved]
  - Osteomyelitis [Unknown]
  - Drug hypersensitivity [Unknown]
  - Sinusitis [Unknown]
  - Rash [Unknown]
  - Urticaria [Unknown]
  - Vocal cord paralysis [Unknown]
  - Hypovolaemia [Recovering/Resolving]
  - Urinary tract infection [Unknown]
  - Coronary artery disease [Unknown]
  - Salivary gland disorder [Unknown]
  - Sinusitis [Not Recovered/Not Resolved]
  - Viral infection [Unknown]
  - Ventricular extrasystoles [Unknown]
  - Infection [Unknown]
  - Myalgia [Unknown]
  - Hepatic mass [Unknown]
  - Renal failure [Unknown]
  - Death [Fatal]
  - Constipation [Unknown]
  - Cataract [Unknown]
  - Tooth deposit [Unknown]
  - Rash [Unknown]
  - Jaw disorder [Unknown]
  - Vomiting [Recovering/Resolving]
  - Emotional distress [Unknown]
  - Ear pain [Unknown]
  - Dizziness [Unknown]

NARRATIVE: CASE EVENT DATE: 199802
